FAERS Safety Report 21995279 (Version 1)
Quarter: 2023Q1

REPORT INFORMATION
  Report Type: Spontaneous
  Country: US (occurrence: None)
  Receive Date: 20230215
  Receipt Date: 20230215
  Transmission Date: 20230417
  Serious: Yes (Hospitalization)
  Sender: FDA-Public Use
  Company Number: US-ROCHE-3283141

PATIENT
  Sex: Male

DRUGS (1)
  1. ESBRIET [Suspect]
     Active Substance: PIRFENIDONE
     Indication: Interstitial lung disease
     Dosage: TAKE 1 CAPSULE 3 TIMES DAILY IN A WEEK THEN 2 CAPSULES 3 TIMES DAILY IN A WEEK, THEN 3 CAPSULES 3 TI
     Route: 048

REACTIONS (2)
  - Dyspnoea [Unknown]
  - Dysuria [Unknown]
